FAERS Safety Report 5971584-7 (Version None)
Quarter: 2008Q4

REPORT INFORMATION
  Report Type: 
  Country: None (occurrence: None)
  Receive Date: 20081126
  Receipt Date: 20081126
  Transmission Date: 20090506
  Serious: Yes (Other)
  Sender: FDA-Public Use
  Company Number: None

PATIENT
  Age: 64 Year
  Weight: 92.9874 kg

DRUGS (3)
  1. CHLORZOXAZONE [Suspect]
     Indication: HEADACHE
     Route: 048
     Dates: start: 20040101, end: 20080101
  2. CHLORZOXAZONE [Suspect]
     Indication: MUSCLE DISORDER
     Route: 048
     Dates: start: 20040101, end: 20080101
  3. PARAFON FORTE DSC [Suspect]

REACTIONS (2)
  - CIRCUMSTANCE OR INFORMATION CAPABLE OF LEADING TO MEDICATION ERROR [None]
  - MEDICATION ERROR [None]
